FAERS Safety Report 9742656 (Version 2)
Quarter: 2013Q4

REPORT INFORMATION
  Report Type: Spontaneous
  Country: US (occurrence: US)
  Receive Date: 20131210
  Receipt Date: 20131210
  Transmission Date: 20140711
  Serious: No
  Sender: FDA-Public Use
  Company Number: US-GILEAD-2009-0024276

PATIENT
  Sex: Female
  Weight: 48.99 kg

DRUGS (11)
  1. LETAIRIS [Suspect]
     Indication: PULMONARY ARTERIAL HYPERTENSION
     Route: 048
     Dates: start: 20090604
  2. LASIX [Concomitant]
  3. ALBUTEROL INHALER [Concomitant]
  4. SPIRIVA [Concomitant]
  5. PROCRIT [Concomitant]
  6. TRICOR [Concomitant]
  7. EXELON [Concomitant]
  8. NAMENDA [Concomitant]
  9. FLOMAX [Concomitant]
  10. ASPIRIN [Concomitant]
  11. MULTIVITAMIN [Concomitant]

REACTIONS (2)
  - Diplacusis [Unknown]
  - Hearing impaired [Unknown]
